FAERS Safety Report 18210349 (Version 2)
Quarter: 2020Q3

REPORT INFORMATION
  Report Type: Spontaneous
  Country: US (occurrence: US)
  Receive Date: 20200829
  Receipt Date: 20200905
  Transmission Date: 20201103
  Serious: No
  Sender: FDA-Public Use
  Company Number: US-009507513-2008USA008315

PATIENT
  Sex: Female

DRUGS (3)
  1. DULERA [Suspect]
     Active Substance: FORMOTEROL FUMARATE DIHYDRATE\MOMETASONE FUROATE
     Indication: COVID-19 PROPHYLAXIS
     Dosage: 2 PUFFS, TWICE DAILY
     Route: 048
     Dates: end: 202008
  2. DULERA [Suspect]
     Active Substance: FORMOTEROL FUMARATE DIHYDRATE\MOMETASONE FUROATE
     Indication: COVID-19 PROPHYLAXIS
     Dosage: 2 PUFFS, TWICE DAILY
     Route: 048
  3. DULERA [Suspect]
     Active Substance: FORMOTEROL FUMARATE DIHYDRATE\MOMETASONE FUROATE
     Dosage: 2 PUFFS, TWICE DAILY
     Route: 048
     Dates: start: 2020, end: 2020

REACTIONS (5)
  - Poor quality device used [Unknown]
  - Product use in unapproved indication [Unknown]
  - Device malfunction [Unknown]
  - Poor quality device used [Unknown]
  - Device malfunction [Unknown]

NARRATIVE: CASE EVENT DATE: 20200810
